FAERS Safety Report 9665272 (Version 1)
Quarter: 2013Q4

REPORT INFORMATION
  Report Type: Spontaneous
  Country: US (occurrence: US)
  Receive Date: 20131101
  Receipt Date: 20131101
  Transmission Date: 20140711
  Serious: Yes (Other)
  Sender: FDA-Public Use
  Company Number: CHPA2013US016319

PATIENT
  Age: 36 Year
  Sex: Female

DRUGS (1)
  1. EX-LAX REG STR CHOCOLATED LAX PCS SEN [Suspect]
     Indication: BOWEL MOVEMENT IRREGULARITY
     Dosage: 2-4 DF, QD
     Route: 048

REACTIONS (5)
  - Systemic lupus erythematosus [Not Recovered/Not Resolved]
  - Concomitant disease aggravated [Not Recovered/Not Resolved]
  - Activities of daily living impaired [Not Recovered/Not Resolved]
  - Vomiting [Not Recovered/Not Resolved]
  - Incorrect drug administration duration [Unknown]
